FAERS Safety Report 13306470 (Version 1)
Quarter: 2017Q1

REPORT INFORMATION
  Report Type: Spontaneous
  Country: FR (occurrence: FR)
  Receive Date: 20170308
  Receipt Date: 20170308
  Transmission Date: 20170428
  Serious: Yes (Other)
  Sender: FDA-Public Use
  Company Number: FR-009507513-1702FRA001196

PATIENT
  Age: 32 Year
  Sex: Female
  Weight: 110 kg

DRUGS (2)
  1. APRANAX (NAPROXEN) [Concomitant]
     Active Substance: NAPROXEN
     Indication: CERVICOBRACHIAL SYNDROME
     Route: 048
  2. NEXPLANON [Suspect]
     Active Substance: ETONOGESTREL
     Indication: CONTRACEPTION
     Dosage: LEFT ARM
     Route: 059
     Dates: start: 201407, end: 20170204

REACTIONS (4)
  - Inappropriate schedule of drug administration [Unknown]
  - Abortion spontaneous [Unknown]
  - Unintended pregnancy [Recovered/Resolved]
  - Pregnancy with implant contraceptive [Recovered/Resolved]

NARRATIVE: CASE EVENT DATE: 201407
